FAERS Safety Report 5774669-3 (Version None)
Quarter: 2008Q2

REPORT INFORMATION
  Report Type: 
  Country: None (occurrence: None)
  Receive Date: 20080617
  Receipt Date: 20080611
  Transmission Date: 20081010
  Serious: Yes (Death, Hospitalization)
  Sender: FDA-Public Use
  Company Number: US-SP-2008-01964

PATIENT
  Age: 79 Year
  Sex: Male

DRUGS (4)
  1. BOTULISM ANTITOXIN ABE [Suspect]
     Indication: BOTULISM
     Route: 065
     Dates: start: 20070510
  2. BOTULISM ANTITOXIN ABE [Suspect]
     Route: 065
     Dates: start: 20070510
  3. BOTULISM AB [Suspect]
     Indication: BOTULISM
     Route: 065
     Dates: start: 20070510
  4. BOTULISM AB [Suspect]
     Route: 065
     Dates: start: 20070510

REACTIONS (3)
  - CORNEAL REFLEX DECREASED [None]
  - PNEUMONIA [None]
  - RESPIRATORY FAILURE [None]
